FAERS Safety Report 13365366 (Version 1)
Quarter: 2017Q1

REPORT INFORMATION
  Report Type: Spontaneous
  Country: US (occurrence: US)
  Receive Date: 20170323
  Receipt Date: 20170323
  Transmission Date: 20170429
  Serious: No
  Sender: FDA-Public Use
  Company Number: US-ALLERGAN-1706482US

PATIENT
  Age: 90 Year
  Sex: Female

DRUGS (8)
  1. OXYBUTYNIN UNK [Suspect]
     Active Substance: OXYBUTYNIN
     Dosage: UNK
     Route: 065
     Dates: start: 20161204
  2. TROSPIUM [Suspect]
     Active Substance: TROSPIUM
     Indication: INCONTINENCE
     Dosage: UNK
     Route: 065
     Dates: start: 20160501
  3. MYRBETRIQ [Suspect]
     Active Substance: MIRABEGRON
     Indication: INCONTINENCE
     Dosage: 50 MG, QD
     Route: 048
     Dates: start: 20160914
  4. MYRBETRIQ [Suspect]
     Active Substance: MIRABEGRON
     Dosage: 50 MG, QD
     Route: 048
     Dates: start: 20161014, end: 20161204
  5. OXYBUTYNIN UNK [Suspect]
     Active Substance: OXYBUTYNIN
     Indication: INCONTINENCE
     Dosage: UNK
     Route: 065
     Dates: start: 20160501
  6. ESTRACE [Suspect]
     Active Substance: ESTRADIOL
     Indication: INCONTINENCE
     Dosage: UNK
     Route: 067
     Dates: start: 201605
  7. DETROL [Suspect]
     Active Substance: TOLTERODINE TARTRATE
     Indication: INCONTINENCE
     Dosage: UNK
     Route: 065
     Dates: start: 20160501
  8. SPIRONOLACTONE. [Concomitant]
     Active Substance: SPIRONOLACTONE
     Indication: PRODUCT USED FOR UNKNOWN INDICATION
     Route: 065

REACTIONS (4)
  - Thyroid disorder [Unknown]
  - Off label use [Unknown]
  - Anaemia [Unknown]
  - Somnolence [Unknown]

NARRATIVE: CASE EVENT DATE: 2016
